FAERS Safety Report 7409520-9 (Version None)
Quarter: 2011Q2

REPORT INFORMATION
  Report Type: 
  Country: None (occurrence: None)
  Receive Date: 20110407
  Receipt Date: 20110407
  Transmission Date: 20111010
  Serious: Yes (Hospitalization)
  Sender: FDA-Public Use
  Company Number: None

PATIENT
  Sex: Male
  Weight: 67 kg

DRUGS (2)
  1. PACLITAXEL [Suspect]
     Dosage: 83 MG
     Dates: end: 20110323
  2. CARBOPLATIN [Suspect]
     Dosage: 283 MG
     Dates: end: 20110323

REACTIONS (1)
  - THROMBOCYTOPENIA [None]
